FAERS Safety Report 5867247-9 (Version None)
Quarter: 2008Q4

REPORT INFORMATION
  Report Type: 
  Country: None (occurrence: None)
  Receive Date: 20080902
  Receipt Date: 20080826
  Transmission Date: 20090506
  Serious: Yes (Other)
  Sender: FDA-Public Use
  Company Number: US-MERCK-0803USA02431B1

PATIENT
  Sex: Male

DRUGS (3)
  1. JANUVIA [Suspect]
     Indication: GESTATIONAL DIABETES
     Route: 064
     Dates: start: 20080301
  2. [THERAPY UNSPECIFIED] [Concomitant]
     Route: 064
  3. VITAMINS (UNSPECIFIED) [Concomitant]
     Route: 064

REACTIONS (2)
  - CONVULSION [None]
  - MATERNAL DRUGS AFFECTING FOETUS [None]
